FAERS Safety Report 10690479 (Version 1)
Quarter: 2015Q1

REPORT INFORMATION
  Report Type: Spontaneous
  Country: US (occurrence: None)
  Receive Date: 20150102
  Receipt Date: 20150102
  Transmission Date: 20150720
  Serious: Yes (Life-Threatening, Hospitalization, Disabling, Other)
  Sender: FDA-Public Use
  Company Number: None

PATIENT
  Age: 54 Year
  Sex: Male
  Weight: 98.88 kg

DRUGS (1)
  1. TESTIM [Suspect]
     Active Substance: TESTOSTERONE
     Indication: BLOOD TESTOSTERONE DECREASED
     Dosage: 1 TUBE ONCE DAILY APPLIED TO A SURFACE, USUALLY THE SKIN
     Route: 061
     Dates: start: 20120830, end: 20130807

REACTIONS (7)
  - Myocardial infarction [None]
  - Blood testosterone increased [None]
  - Restlessness [None]
  - Erythema [None]
  - Skin irritation [None]
  - Insomnia [None]
  - Red blood cell count increased [None]

NARRATIVE: CASE EVENT DATE: 20140328
